FAERS Safety Report 4337279-0 (Version None)
Quarter: 2004Q2

REPORT INFORMATION
  Report Type: 
  Country: None (occurrence: None)
  Receive Date: 20040408
  Receipt Date: 20040329
  Transmission Date: 20050107
  Serious: Yes (Hospitalization)
  Sender: FDA-Public Use
  Company Number: 04P-056-0255056-00

PATIENT
  Age: 76 Year
  Sex: Male
  Weight: 92 kg

DRUGS (6)
  1. TRICOR [Suspect]
     Indication: HYPERCHOLESTEROLAEMIA
     Dosage: 160 MG, 1 IN 1 D, ORAL
     Route: 048
     Dates: end: 20040112
  2. DIOSMIN [Concomitant]
  3. ACETAMINOPHEN [Concomitant]
  4. OFLOXACIN [Concomitant]
  5. CEFIXIME [Concomitant]
  6. HEPARIN-FRACTION, SODIUM SALT [Concomitant]

REACTIONS (6)
  - BETA HAEMOLYTIC STREPTOCOCCAL INFECTION [None]
  - CYTOLYTIC HEPATITIS [None]
  - DIARRHOEA [None]
  - LEUKOPENIA [None]
  - NEUTROPENIA [None]
  - PYREXIA [None]
